FAERS Safety Report 7617332-6 (Version None)
Quarter: 2011Q3

REPORT INFORMATION
  Report Type: 
  Country: None (occurrence: None)
  Receive Date: 20110718
  Receipt Date: 20110712
  Transmission Date: 20111222
  Serious: Yes (Death)
  Sender: FDA-Public Use
  Company Number: PHHY2011BR61963

PATIENT
  Sex: Female

DRUGS (3)
  1. DIOVAN [Suspect]
     Dosage: 80 MG,
  2. DIOVAN HCT [Suspect]
     Dosage: 80 MG VALSARTAN/12.5 MG HYDROCHLOROTHIAZIDE
  3. STARLIX [Suspect]
     Dosage: 120 MG, UNK

REACTIONS (1)
  - DEATH [None]
